FAERS Safety Report 8226747-7 (Version None)
Quarter: 2012Q1

REPORT INFORMATION
  Report Type: 
  Country: None (occurrence: None)
  Receive Date: 20120322
  Receipt Date: 20120313
  Transmission Date: 20120608
  Serious: Yes (Other)
  Sender: FDA-Public Use
  Company Number: US-BAYER-2011-075085

PATIENT
  Age: 23 Year
  Sex: Female
  Weight: 61.224 kg

DRUGS (4)
  1. YAZ [Suspect]
     Dosage: UNK
     Dates: start: 20090401, end: 20090501
  2. YAZ [Suspect]
     Indication: ORAL CONTRACEPTION
     Dosage: UNK
     Dates: start: 20080108, end: 20080601
  3. YAZ [Suspect]
     Dosage: UNK
     Dates: start: 20080901, end: 20081001
  4. SPRINTEC [Concomitant]
     Dosage: UNK
     Dates: start: 20081027, end: 20090319

REACTIONS (4)
  - PAIN [None]
  - INJURY [None]
  - CHOLECYSTECTOMY [None]
  - BILIARY COLIC [None]
